FAERS Safety Report 24724843 (Version 2)
Quarter: 2025Q3

REPORT INFORMATION
  Report Type: Report from Study
  Country: GB (occurrence: GB)
  Receive Date: 20241212
  Receipt Date: 20250803
  Transmission Date: 20251021
  Serious: Yes (Other)
  Sender: ALEXION PHARMACEUTICALS
  Company Number: GB-AstraZeneca-CH-00761055A

PATIENT
  Sex: Female

DRUGS (1)
  1. BENRALIZUMAB [Suspect]
     Active Substance: BENRALIZUMAB
     Indication: Asthma
     Dosage: 30 MILLIGRAM, Q4W
     Dates: start: 202409

REACTIONS (2)
  - Blood pressure increased [Unknown]
  - Back pain [Recovered/Resolved]
